FAERS Safety Report 8561297-X (Version None)
Quarter: 2012Q3

REPORT INFORMATION
  Report Type: 
  Country: None (occurrence: None)
  Receive Date: 20120802
  Receipt Date: 20120723
  Transmission Date: 20120928
  Serious: Yes (Other)
  Sender: FDA-Public Use
  Company Number: DE-NAPPMUNDI-DEU-2012-0009067

PATIENT
  Age: 31 Year
  Sex: Female

DRUGS (1)
  1. PALLADONE [Suspect]
     Indication: PROCEDURAL PAIN
     Dosage: 4 MG, DAILY

REACTIONS (1)
  - DYSPNOEA [None]
